FAERS Safety Report 8799186 (Version 1)
Quarter: 2012Q4

REPORT INFORMATION
  Report Type: 
  Country: US (occurrence: US)
  Receive Date: 20120920
  Receipt Date: 20120920
  Transmission Date: 20130627
  Serious: No
  Sender: FDA-Public Use
  Company Number: US-ASTRAZENECA-2012SE20566

PATIENT
  Age: 74 Year
  Sex: Female

DRUGS (3)
  1. LISINOPRIL [Suspect]
     Route: 048
  2. METHOTREXATE [Concomitant]
  3. ENBREL [Concomitant]

REACTIONS (3)
  - Malaise [Unknown]
  - Drug intolerance [Unknown]
  - Headache [Unknown]
